FAERS Safety Report 9887790 (Version 2)
Quarter: 2014Q1

REPORT INFORMATION
  Report Type: Report from Study
  Country: US (occurrence: US)
  Receive Date: 20140211
  Receipt Date: 20140214
  Transmission Date: 20141002
  Serious: No
  Sender: FDA-Public Use
  Company Number: US-ROCHE-1344269

PATIENT
  Sex: Male
  Weight: 121.67 kg

DRUGS (13)
  1. ACTEMRA [Suspect]
     Indication: RHEUMATOID ARTHRITIS
     Route: 042
     Dates: start: 20140129
  2. METHOTREXATE [Concomitant]
     Route: 048
  3. TOPROL [Concomitant]
  4. VASOTEC [Concomitant]
  5. ALLOPURINOL [Concomitant]
     Route: 065
  6. LIPITOR [Concomitant]
  7. FOLIC ACID [Concomitant]
  8. FOSAMAX [Concomitant]
  9. CELEBREX [Concomitant]
  10. VITAMIN E [Concomitant]
  11. VITAMIN C [Concomitant]
  12. FISH OIL [Concomitant]
  13. CYCLOBENZAPRINE [Concomitant]

REACTIONS (3)
  - Hot flush [Recovered/Resolved]
  - Dyspnoea [Recovered/Resolved]
  - Blood pressure increased [Recovered/Resolved]
